FAERS Safety Report 6955557-3 (Version None)
Quarter: 2010Q3

REPORT INFORMATION
  Report Type: 
  Country: None (occurrence: None)
  Receive Date: 20100826
  Receipt Date: 20100826
  Transmission Date: 20110219
  Serious: Yes (Hospitalization)
  Sender: FDA-Public Use
  Company Number: None

PATIENT
  Age: 55 Year
  Sex: Female
  Weight: 85.7298 kg

DRUGS (1)
  1. CARBAMAZEPINE [Suspect]
     Indication: TRIGEMINAL NEURALGIA
     Dosage: 200MG THREE TIMES A DAY PO
     Route: 048

REACTIONS (15)
  - ASTHENIA [None]
  - DEPRESSION [None]
  - DRUG INEFFECTIVE [None]
  - DYSPHAGIA [None]
  - EPISTAXIS [None]
  - MALAISE [None]
  - OCULAR HYPERAEMIA [None]
  - ORAL PAIN [None]
  - PYREXIA [None]
  - RHEUMATOID ARTHRITIS [None]
  - SKIN DISORDER [None]
  - SKIN EXFOLIATION [None]
  - SPEECH DISORDER [None]
  - STOMATITIS [None]
  - VISUAL IMPAIRMENT [None]
